FAERS Safety Report 10940837 (Version 2)
Quarter: 2015Q2

REPORT INFORMATION
  Report Type: Spontaneous
  Country: US (occurrence: US)
  Receive Date: 20150322
  Receipt Date: 20150524
  Transmission Date: 20150821
  Serious: No
  Sender: FDA-Public Use
  Company Number: US-JNJFOC-20130504794

PATIENT
  Sex: Female
  Weight: 90.72 kg

DRUGS (6)
  1. REGULAR HUMULIN [Concomitant]
     Indication: TYPE 2 DIABETES MELLITUS
     Dates: start: 2009
  2. INVOKANA [Suspect]
     Active Substance: CANAGLIFLOZIN
     Indication: TYPE 2 DIABETES MELLITUS
     Route: 048
     Dates: start: 20130503, end: 2013
  3. INVOKANA [Suspect]
     Active Substance: CANAGLIFLOZIN
     Indication: TYPE 2 DIABETES MELLITUS
     Route: 048
     Dates: start: 2013, end: 2013
  4. AMBIEN [Concomitant]
     Active Substance: ZOLPIDEM TARTRATE
     Indication: INSOMNIA
     Dates: start: 2011
  5. INVOKANA [Suspect]
     Active Substance: CANAGLIFLOZIN
     Indication: TYPE 2 DIABETES MELLITUS
     Route: 048
     Dates: start: 2013, end: 20130603
  6. LANTUS [Concomitant]
     Active Substance: INSULIN GLARGINE
     Indication: TYPE 2 DIABETES MELLITUS
     Dates: start: 2009

REACTIONS (5)
  - Urinary tract infection [Recovered/Resolved]
  - Drug ineffective [Recovered/Resolved]
  - Irritability [Recovered/Resolved]
  - Blood glucose increased [Not Recovered/Not Resolved]
  - Agitation [Recovered/Resolved]
